FAERS Safety Report 7265311-3 (Version None)
Quarter: 2011Q1

REPORT INFORMATION
  Report Type: 
  Country: None (occurrence: None)
  Receive Date: 20110131
  Receipt Date: 20110125
  Transmission Date: 20110831
  Serious: Yes (Death)
  Sender: FDA-Public Use
  Company Number: JP-JNJFOC-20110107376

PATIENT
  Age: 60 Year
  Sex: Female

DRUGS (4)
  1. RISPERDAL CONSTA [Suspect]
     Indication: ILL-DEFINED DISORDER
     Route: 030
  2. MYSLEE [Concomitant]
     Route: 048
  3. FLUNITRAZEPAM [Concomitant]
     Route: 065
  4. MAGLAX [Concomitant]
     Route: 048

REACTIONS (1)
  - CARDIAC FAILURE ACUTE [None]
